FAERS Safety Report 9308077 (Version 2)
Quarter: 2013Q2

REPORT INFORMATION
  Report Type: Report from Study
  Country: LB (occurrence: LB)
  Receive Date: 20130524
  Receipt Date: 20130530
  Transmission Date: 20140414
  Serious: Yes (Death)
  Sender: FDA-Public Use
  Company Number: LB-SANOFI-AVENTIS-2013SA051410

PATIENT
  Age: 53 Year
  Sex: Female

DRUGS (6)
  1. LANTUS [Suspect]
     Indication: DIABETES MELLITUS
     Dosage: DOSE:15 UNIT(S)
     Route: 058
     Dates: start: 20111116
  2. GLUCOPHAGE [Concomitant]
     Indication: DIABETES MELLITUS
     Route: 048
  3. GLUCONORM [Concomitant]
     Indication: DIABETES MELLITUS
     Route: 048
  4. THALIDOMIDE [Concomitant]
     Indication: NEOPLASM MALIGNANT
  5. ZOMETA [Concomitant]
     Indication: NEOPLASM MALIGNANT
  6. GLUCOCORTICOIDS [Concomitant]

REACTIONS (2)
  - Neoplasm malignant [Fatal]
  - Condition aggravated [Unknown]
